FAERS Safety Report 5628524-X (Version None)
Quarter: 2008Q1

REPORT INFORMATION
  Report Type: 
  Country: None (occurrence: None)
  Receive Date: 20080214
  Receipt Date: 20080214
  Transmission Date: 20080703
  Serious: Yes (Disabling, Other)
  Sender: FDA-Public Use
  Company Number: None

PATIENT
  Age: 68 Year
  Sex: Female
  Weight: 54.8852 kg

DRUGS (1)
  1. PANTOPRAZOLE SODIUM [Suspect]
     Indication: GASTROOESOPHAGEAL REFLUX DISEASE
     Dosage: 40 MG TAB  ONE PER DAY  PO
     Route: 048
     Dates: start: 20080119, end: 20080120

REACTIONS (5)
  - ABDOMINAL PAIN [None]
  - GINGIVAL ULCERATION [None]
  - MOUTH ULCERATION [None]
  - PHARYNGEAL ULCERATION [None]
  - TONGUE ULCERATION [None]
